FAERS Safety Report 5993370-4 (Version None)
Quarter: 2008Q4

REPORT INFORMATION
  Report Type: 
  Country: None (occurrence: None)
  Receive Date: 20081212
  Receipt Date: 20081201
  Transmission Date: 20090506
  Serious: Yes (Hospitalization, Other)
  Sender: FDA-Public Use
  Company Number: US-TEVA-181644USA

PATIENT
  Age: 13 Year
  Sex: Male

DRUGS (3)
  1. PROPOFOL [Suspect]
     Indication: ANAESTHESIA
     Dosage: 100-200 UG/KG/MIN
     Route: 042
  2. VECURONIUM BROMIDE [Suspect]
  3. REMIFENTANIL [Suspect]

REACTIONS (1)
  - DIABETES INSIPIDUS [None]
